FAERS Safety Report 7423160-7 (Version None)
Quarter: 2011Q2

REPORT INFORMATION
  Report Type: 
  Country: None (occurrence: None)
  Receive Date: 20110419
  Receipt Date: 20110404
  Transmission Date: 20111010
  Serious: Yes (Hospitalization)
  Sender: FDA-Public Use
  Company Number: FR-JNJFOC-20110402728

PATIENT
  Sex: Male
  Weight: 2.15 kg

DRUGS (10)
  1. RISPERDAL [Suspect]
     Dosage: DRUG EXPOSURE IN UTERO.
     Route: 063
  2. RISPERDAL [Suspect]
     Indication: DRUG EXPOSURE VIA BREAST MILK
     Dosage: DRUG EXPOSURE IN UTERO.
     Route: 063
  3. RISPERDAL [Suspect]
     Dosage: DRUG EXPOSURE VIA BREAST MILK
     Route: 063
  4. SPECIAFOLDINE [Concomitant]
     Indication: DRUG EXPOSURE DURING PREGNANCY
     Route: 064
     Dates: end: 20100801
  5. RISPERDAL [Suspect]
     Dosage: DRUG EXPOSURE IN UTERO.
     Route: 063
  6. PROCTOLOG [Concomitant]
     Indication: DRUG EXPOSURE DURING PREGNANCY
     Route: 064
     Dates: start: 20101101, end: 20101218
  7. RISPERDAL [Suspect]
     Indication: DRUG EXPOSURE DURING PREGNANCY
     Dosage: DRUG EXPOSURE IN UTERO.
     Route: 063
  8. TARDYFERON [Concomitant]
     Indication: DRUG EXPOSURE DURING PREGNANCY
     Route: 064
     Dates: start: 20101001, end: 20101218
  9. RISPERDAL [Suspect]
     Dosage: DRUG EXPOSURE VIA BREAST MILK
     Route: 063
  10. FEMIBION [Concomitant]
     Indication: DRUG EXPOSURE DURING PREGNANCY
     Route: 064
     Dates: start: 20100801, end: 20101218

REACTIONS (4)
  - BREAST FEEDING [None]
  - SMALL FOR DATES BABY [None]
  - PREMATURE BABY [None]
  - JAUNDICE NEONATAL [None]
